FAERS Safety Report 15985029 (Version 1)
Quarter: 2019Q1

REPORT INFORMATION
  Report Type: Spontaneous
  Country: US (occurrence: US)
  Receive Date: 20190220
  Receipt Date: 20190220
  Transmission Date: 20190418
  Serious: Yes (Other)
  Sender: FDA-Public Use
  Company Number: US-SA-2019SA043121

PATIENT
  Sex: Female

DRUGS (3)
  1. NOVOLOG [Concomitant]
     Active Substance: INSULIN ASPART
     Dosage: 10 U, TID
     Route: 065
  2. LANTUS SOLOSTAR [Suspect]
     Active Substance: INSULIN GLARGINE
     Indication: TYPE 2 DIABETES MELLITUS
     Dosage: 60 UNITS BEFORE BREAKFAST, 40 UNITS AT LUNCH AND 60 UNITS AT DINNER
     Route: 065
     Dates: start: 201810
  3. HUMALOG [Concomitant]
     Active Substance: INSULIN LISPRO

REACTIONS (8)
  - Blood glucose increased [Unknown]
  - Injection site paraesthesia [Unknown]
  - Off label use [Unknown]
  - Weight increased [Unknown]
  - Renal disorder [Unknown]
  - Glycosylated haemoglobin increased [Unknown]
  - Neuropathy peripheral [Unknown]
  - Injection site pain [Unknown]
